FAERS Safety Report 16980736 (Version 1)
Quarter: 2019Q4

REPORT INFORMATION
  Report Type: Spontaneous
  Country: US (occurrence: US)
  Receive Date: 20191031
  Receipt Date: 20191031
  Transmission Date: 20200122
  Serious: No
  Sender: FDA-Public Use
  Company Number: US-PERRIGO-19US006884

PATIENT
  Age: 77 Year
  Sex: Female

DRUGS (3)
  1. UNISOM SLEEPTABS [Suspect]
     Active Substance: DOXYLAMINE SUCCINATE
     Indication: INSOMNIA
     Dosage: 25 MG, UNKNOWN
     Route: 048
     Dates: start: 201904, end: 20190528
  2. PHENTERMINE. [Concomitant]
     Active Substance: PHENTERMINE
     Indication: MEDICAL DIET
     Dosage: UNK
     Route: 065
  3. UNISOM SLEEPTABS [Suspect]
     Active Substance: DOXYLAMINE SUCCINATE
     Dosage: 37.5 MG, SINGLE
     Route: 048
     Dates: start: 20190529, end: 20190529

REACTIONS (2)
  - Therapeutic product effect decreased [Unknown]
  - Incorrect dose administered [Recovered/Resolved]

NARRATIVE: CASE EVENT DATE: 201904
